FAERS Safety Report 8221144-2 (Version None)
Quarter: 2012Q1

REPORT INFORMATION
  Report Type: 
  Country: None (occurrence: None)
  Receive Date: 20120320
  Receipt Date: 20120313
  Transmission Date: 20120608
  Serious: Yes (Hospitalization)
  Sender: FDA-Public Use
  Company Number: TW-PFIZER INC-2012065342

PATIENT
  Sex: Male

DRUGS (1)
  1. DILANTIN [Suspect]
     Indication: CONVULSION
     Dosage: 3 DOSAGE FORMS, ONCE A DAY AT BEDTIME
     Route: 048
     Dates: start: 20110101, end: 20120101

REACTIONS (4)
  - DRUG LEVEL INCREASED [None]
  - DIZZINESS [None]
  - ASTHENIA [None]
  - GAIT DISTURBANCE [None]
